FAERS Safety Report 20791991 (Version 3)
Quarter: 2023Q1

REPORT INFORMATION
  Report Type: Spontaneous
  Country: US (occurrence: US)
  Receive Date: 20220505
  Receipt Date: 20230302
  Transmission Date: 20230418
  Serious: No
  Sender: FDA-Public Use
  Company Number: US-PFIZER INC-202101340860

PATIENT
  Age: 62 Year
  Sex: Female

DRUGS (2)
  1. XELJANZ XR [Suspect]
     Active Substance: TOFACITINIB CITRATE
     Indication: Psoriatic arthropathy
     Dosage: 11 MG, 1X/DAY
     Route: 048
     Dates: start: 202106
  2. XELJANZ XR [Suspect]
     Active Substance: TOFACITINIB CITRATE
     Indication: Psoriasis
     Dosage: 11 MG
     Dates: start: 20220124

REACTIONS (9)
  - Product dose omission in error [Unknown]
  - Migraine [Recovered/Resolved]
  - Memory impairment [Unknown]
  - Nasopharyngitis [Unknown]
  - Skin disorder [Unknown]
  - Pyrexia [Recovered/Resolved]
  - Pustule [Unknown]
  - Arthritis [Unknown]
  - Rash macular [Unknown]

NARRATIVE: CASE EVENT DATE: 20210101
